FAERS Safety Report 9349561 (Version 1)
Quarter: 2013Q2

REPORT INFORMATION
  Report Type: Spontaneous
  Country: JP (occurrence: JP)
  Receive Date: 20130614
  Receipt Date: 20130614
  Transmission Date: 20140414
  Serious: Yes (Other)
  Sender: FDA-Public Use
  Company Number: JP-GLAXOSMITHKLINE-B0898734A

PATIENT
  Age: 66 Year
  Sex: Female

DRUGS (2)
  1. VALTREX [Suspect]
     Indication: OPHTHALMIC HERPES ZOSTER
     Dosage: 1000MG THREE TIMES PER DAY
     Route: 048
     Dates: start: 20130516, end: 20130525
  2. VALTREX [Suspect]
     Indication: OPHTHALMIC HERPES ZOSTER
     Dosage: 500MG THREE TIMES PER DAY
     Route: 048
     Dates: start: 20130605

REACTIONS (2)
  - Nausea [Unknown]
  - Ophthalmic herpes zoster [Unknown]
